FAERS Safety Report 8846160 (Version 1)
Quarter: 2012Q4

REPORT INFORMATION
  Report Type: 
  Country: FR (occurrence: FR)
  Receive Date: 20121017
  Receipt Date: 20121017
  Transmission Date: 20130627
  Serious: Yes (Other)
  Sender: FDA-Public Use
  Company Number: PHHY2012FR074318

PATIENT
  Age: 47 Year
  Sex: Male
  Weight: 89 kg

DRUGS (3)
  1. ONBREZ [Suspect]
     Indication: ASTHMA
     Dosage: UNK
     Route: 048
     Dates: start: 20120510, end: 20120607
  2. SPIRIVA [Concomitant]
     Indication: ASTHMA
     Dosage: UNK
     Route: 048
     Dates: start: 20120510, end: 20120607
  3. SERETIDE [Concomitant]

REACTIONS (2)
  - Asthma [Recovered/Resolved]
  - Incorrect route of drug administration [Unknown]
